FAERS Safety Report 4571663-5 (Version None)
Quarter: 2005Q1

REPORT INFORMATION
  Report Type: 
  Country: None (occurrence: None)
  Receive Date: 20050207
  Receipt Date: 20041210
  Transmission Date: 20050727
  Serious: Yes (Death, Life-Threatening, Hospitalization)
  Sender: FDA-Public Use
  Company Number: BE-AMGEN-UK102554

PATIENT
  Sex: Female
  Weight: 60.9 kg

DRUGS (12)
  1. AMG 099073 [Suspect]
     Indication: HYPERPARATHYROIDISM SECONDARY
     Route: 048
     Dates: start: 20041027, end: 20041207
  2. EPREX [Concomitant]
     Route: 065
  3. PREMARIN [Concomitant]
     Route: 065
  4. ESTROGENS [Concomitant]
     Route: 065
  5. MEDROGESTONE [Concomitant]
     Route: 065
  6. CALCITRIOL [Concomitant]
     Route: 065
  7. ACCUPRIL [Concomitant]
     Route: 065
  8. CALCIUM CARBONATE [Concomitant]
     Route: 065
  9. LORMETAZEPAM [Concomitant]
     Route: 065
  10. OMEPRAZOLE [Concomitant]
     Route: 065
  11. RENAGEL [Concomitant]
     Route: 065
  12. VITAMIN A [Concomitant]
     Route: 065

REACTIONS (8)
  - ANAESTHETIC COMPLICATION [None]
  - ARRHYTHMIA [None]
  - CIRCULATORY COLLAPSE [None]
  - HAEMODYNAMIC INSTABILITY [None]
  - PERIPHERAL CIRCULATORY FAILURE [None]
  - PROCEDURAL HYPOTENSION [None]
  - UTERINE DILATION AND CURETTAGE [None]
  - UTERINE POLYP [None]
